FAERS Safety Report 4430963-X (Version None)
Quarter: 2004Q3

REPORT INFORMATION
  Report Type: 
  Country: None (occurrence: None)
  Receive Date: 20040824
  Receipt Date: 20040819
  Transmission Date: 20050211
  Serious: Yes (Disabling)
  Sender: FDA-Public Use
  Company Number: 200413112FR

PATIENT
  Age: 50 Year
  Sex: Male

DRUGS (2)
  1. TAXOTERE [Suspect]
     Indication: BRONCHIAL CARCINOMA
     Route: 042
  2. TAXOTERE [Suspect]
     Indication: NEOPLASM RECURRENCE
     Route: 042

REACTIONS (1)
  - DEAFNESS BILATERAL [None]
